FAERS Safety Report 4930399-9 (Version None)
Quarter: 2006Q1

REPORT INFORMATION
  Report Type: 
  Country: None (occurrence: None)
  Receive Date: 20060227
  Receipt Date: 20060215
  Transmission Date: 20060701
  Serious: Yes (Other)
  Sender: FDA-Public Use
  Company Number: 2005BI017361

PATIENT
  Sex: Female

DRUGS (5)
  1. AVONEX [Suspect]
     Indication: MULTIPLE SCLEROSIS
     Dosage: 30 UG; QW; IM
     Route: 030
     Dates: start: 20020809
  2. AVONEX [Suspect]
     Indication: MULTIPLE SCLEROSIS
     Dosage: 30 UG; QW; IM
     Route: 030
  3. ADVAIR DISKUS 100/50 [Concomitant]
  4. VITAMINS [Concomitant]
  5. ASPIRIN [Concomitant]

REACTIONS (3)
  - COUGH [None]
  - LUNG NEOPLASM [None]
  - SARCOIDOSIS [None]
